FAERS Safety Report 10271650 (Version 2)
Quarter: 2014Q3

REPORT INFORMATION
  Report Type: Spontaneous
  Country: US (occurrence: US)
  Receive Date: 20140701
  Receipt Date: 20140701
  Transmission Date: 20150326
  Serious: No
  Sender: FDA-Public Use
  Company Number: -SAAVPROD-CERZ-1002925

PATIENT
  Age: 18 Year
  Sex: Male
  Weight: 85.1 kg

DRUGS (1)
  1. IMIGLUCERASE [Suspect]
     Active Substance: IMIGLUCERASE
     Indication: GAUCHER^S DISEASE
     Dosage: 23.5 U/KG, Q2W DOSE:23.5 UNIT(S)/KILOGRAM BODYWEIGHT
     Route: 042

REACTIONS (1)
  - Epistaxis [Recovered/Resolved]
